FAERS Safety Report 25944097 (Version 2)
Quarter: 2025Q4

REPORT INFORMATION
  Report Type: Spontaneous
  Country: MX (occurrence: MX)
  Receive Date: 20251021
  Receipt Date: 20251022
  Transmission Date: 20260118
  Serious: No
  Sender: IPSEN BIOPHARMACEUTICALS, INC.
  Company Number: MX-IPSEN Group, Research and Development-2025-25805

PATIENT
  Sex: Female

DRUGS (1)
  1. DYSPORT [Suspect]
     Active Substance: ABOBOTULINUMTOXINA
     Indication: Musculoskeletal stiffness

REACTIONS (1)
  - Off label use [Unknown]
